FAERS Safety Report 5650509-8 (Version None)
Quarter: 2008Q1

REPORT INFORMATION
  Report Type: 
  Country: None (occurrence: None)
  Receive Date: 20080305
  Receipt Date: 20080219
  Transmission Date: 20080703
  Serious: Yes (Other)
  Sender: FDA-Public Use
  Company Number: PHEH2008US02015

PATIENT
  Age: 15 Year
  Sex: Male
  Weight: 50.34 kg

DRUGS (4)
  1. TEGRETOL [Suspect]
     Indication: EPILEPSY
  2. ZITHROMAX [Suspect]
     Dates: start: 20080121, end: 20080125
  3. DEPAKOTE [Suspect]
     Indication: EPILEPSY
     Dates: start: 20080121, end: 20080125
  4. STRATTERA [Concomitant]

REACTIONS (6)
  - ANTICONVULSANT DRUG LEVEL DECREASED [None]
  - ANTICONVULSANT DRUG LEVEL THERAPEUTIC [None]
  - CONVULSION [None]
  - EAR INFECTION [None]
  - LYMPHADENOPATHY [None]
  - PAROTITIS [None]
